FAERS Safety Report 18687001 (Version 1)
Quarter: 2020Q4

REPORT INFORMATION
  Report Type: Spontaneous
  Country: CA (occurrence: CA)
  Receive Date: 20201231
  Receipt Date: 20201231
  Transmission Date: 20210114
  Serious: Yes (Hospitalization)
  Sender: FDA-Public Use
  Company Number: CA-LUPIN PHARMACEUTICALS INC.-2020-11112

PATIENT
  Sex: Male
  Weight: 4.03 kg

DRUGS (33)
  1. METHADONE [Suspect]
     Active Substance: METHADONE HYDROCHLORIDE
     Dosage: 145 MILLIGRAM, QD (GESTATIONAL AGE: 21 WEEKS)
     Route: 064
  2. METHADONE [Suspect]
     Active Substance: METHADONE HYDROCHLORIDE
     Dosage: 145 MILLIGRAM, QD (GESTATIONAL AGE: 32-37 WEEKS)
     Route: 064
  3. CARFENATNIL [Suspect]
     Active Substance: CARFENTANIL
     Indication: DRUG ABUSE
     Dosage: UNK
     Route: 064
  4. MORPHINE [Suspect]
     Active Substance: MORPHINE
     Indication: DRUG USE DISORDER
     Dosage: 400 MILLIGRAM (GESTATIONAL AGE: 9 WEEKS; SLOW RELEASE)
     Route: 064
  5. MORPHINE [Suspect]
     Active Substance: MORPHINE
     Dosage: 100 MILLIGRAM (GESTATIONAL AGE: 30 WEEKS AND 31 WEEKS; 2 OVERDOSES; SLOW RELEASE)
     Route: 064
  6. FENTANYL. [Suspect]
     Active Substance: FENTANYL
     Indication: OVERDOSE
  7. METHADONE [Suspect]
     Active Substance: METHADONE HYDROCHLORIDE
     Dosage: 90 MILLIGRAM, QD  (GESTATIONAL AGE: 9 WEEKS)
     Route: 064
  8. METHADONE [Suspect]
     Active Substance: METHADONE HYDROCHLORIDE
     Dosage: 65 MILLIGRAM, QD (GESTATIONAL AGE: 29 WEEKS)
     Route: 064
  9. MORPHINE [Suspect]
     Active Substance: MORPHINE
     Dosage: 300 MILLIGRAM (GESTATIONAL AGE: 19 WEEKS; SLOW RELEASE)
     Route: 064
  10. MORPHINE [Suspect]
     Active Substance: MORPHINE
     Dosage: 600 MILLIGRAM (GESTATIONAL AGE: 32-37 WEEKS; SLOW RELEASE)
     Route: 064
  11. MORPHINE [Suspect]
     Active Substance: MORPHINE
     Dosage: UNK UNK, PRN ((30-50MG ORALLY Q2 HR PRN))
     Route: 064
  12. HYDROMORPHONE [Suspect]
     Active Substance: HYDROMORPHONE
     Dosage: 90 MILLIGRAM, UNK
     Route: 064
  13. METHADONE [Suspect]
     Active Substance: METHADONE HYDROCHLORIDE
     Dosage: 135 MILLIGRAM, QD (GESTATIONAL AGE: 19 WEEKS)
     Route: 064
  14. CARFENATNIL [Suspect]
     Active Substance: CARFENTANIL
     Indication: OVERDOSE
  15. HYDROMORPHONE [Suspect]
     Active Substance: HYDROMORPHONE
     Dosage: 90 MILLIGRAM, UNK
     Route: 064
  16. METHADONE [Suspect]
     Active Substance: METHADONE HYDROCHLORIDE
     Dosage: 28 MILLIGRAM, QD (GESTATIONAL AGE: 28 WEEKS; OVERDOSE)
     Route: 064
  17. METHADONE [Suspect]
     Active Substance: METHADONE HYDROCHLORIDE
     Dosage: 125 MILLIGRAM, QD (GESTATIONAL AGE: 15 WEEKS)
     Route: 064
  18. METHADONE [Suspect]
     Active Substance: METHADONE HYDROCHLORIDE
     Dosage: 80 MILLIGRAM, QD (GESTATIONAL AGE: 30 WEEKS; 2 OVERDOSES)
     Route: 064
  19. NALOXONE [Suspect]
     Active Substance: NALOXONE
     Indication: DRUG THERAPY
     Dosage: UNK
     Route: 064
  20. MORPHINE [Suspect]
     Active Substance: MORPHINE
     Dosage: 360 MILLIGRAM (GESTATIONAL AGE: 11 AND 15 WEEKS; SLOW RELEASE)
     Route: 064
  21. FENTANYL. [Suspect]
     Active Substance: FENTANYL
     Indication: DRUG ABUSE
     Dosage: 1 GRAM, QD
     Route: 064
  22. METHADONE [Suspect]
     Active Substance: METHADONE HYDROCHLORIDE
     Indication: DRUG USE DISORDER
     Dosage: 60 MILLIGRAM, QD (GESTATIONAL AGE: 7 WEEKS)
     Route: 064
  23. METHADONE [Suspect]
     Active Substance: METHADONE HYDROCHLORIDE
     Dosage: 95 MILLIGRAM, QD (GESTATIONAL AGE: 31 WEEKS)
     Route: 064
  24. LEVAMISOLE [Suspect]
     Active Substance: LEVAMISOLE
     Indication: DRUG ABUSE
     Dosage: UNK
     Route: 064
  25. HYDROMORPHONE [Suspect]
     Active Substance: HYDROMORPHONE
     Dosage: 10 MILLIGRAM, UNK
     Route: 064
  26. LEVAMISOLE [Suspect]
     Active Substance: LEVAMISOLE
     Indication: OVERDOSE
  27. MORPHINE [Suspect]
     Active Substance: MORPHINE
     Dosage: 400 MILLIGRAM (GESTATIONAL AGE: 21 AND 23 WEEKS; SLOW RELEASE)
     Route: 064
  28. MORPHINE [Suspect]
     Active Substance: MORPHINE
     Dosage: 30 MILLIGRAM (GESTATIONAL AGE: 24 TO 29 WEEKS; SLOW RELEASE; OVERDOSES)
     Route: 064
  29. HYDROMORPHONE [Suspect]
     Active Substance: HYDROMORPHONE
     Dosage: 10 MILLIGRAM, UNK
     Route: 064
  30. METHADONE [Suspect]
     Active Substance: METHADONE HYDROCHLORIDE
     Dosage: 155 MILLIGRAM, QD (GESTATIONAL AGE: 23 WEEKS)
     Route: 064
  31. METHADONE [Suspect]
     Active Substance: METHADONE HYDROCHLORIDE
     Dosage: 50 MILLIGRAM, QD (GESTATIONAL AGE: 26 WEEKS)
     Route: 064
  32. HYDROMORPHONE [Suspect]
     Active Substance: HYDROMORPHONE
     Indication: DRUG USE DISORDER
     Dosage: 75 MILLIGRAM, UNK
     Route: 064
  33. METHADONE [Suspect]
     Active Substance: METHADONE HYDROCHLORIDE
     Dosage: 110 MILLIGRAM, QD (GESTATIONAL AGE: 11 WEEKS)
     Route: 064

REACTIONS (2)
  - Foetal exposure during pregnancy [Unknown]
  - Drug withdrawal syndrome neonatal [Recovered/Resolved]
